FAERS Safety Report 18667090 (Version 1)
Quarter: 2020Q4

REPORT INFORMATION
  Report Type: Report from Study
  Country: US (occurrence: US)
  Receive Date: 20201228
  Receipt Date: 20201228
  Transmission Date: 20210114
  Serious: No
  Sender: FDA-Public Use
  Company Number: NVSC2020US335025

PATIENT
  Age: 48 Year
  Sex: Female

DRUGS (1)
  1. KESIMPTA [Suspect]
     Active Substance: OFATUMUMAB
     Indication: RHABDOMYOSARCOMA
     Dosage: 20 MG, QMO
     Route: 058
     Dates: start: 20201106

REACTIONS (16)
  - Back pain [Not Recovered/Not Resolved]
  - Facial pain [Recovering/Resolving]
  - Gait inability [Unknown]
  - Myalgia [Recovering/Resolving]
  - Chills [Recovering/Resolving]
  - Rash [Recovering/Resolving]
  - Dysuria [Recovering/Resolving]
  - Hyperhidrosis [Not Recovered/Not Resolved]
  - Erythema [Recovering/Resolving]
  - Fatigue [Not Recovered/Not Resolved]
  - Peripheral swelling [Recovering/Resolving]
  - Eyelid ptosis [Recovering/Resolving]
  - Dyspnoea [Unknown]
  - Headache [Recovering/Resolving]
  - Dizziness [Recovering/Resolving]
  - Vomiting [Recovering/Resolving]

NARRATIVE: CASE EVENT DATE: 20201106
